FAERS Safety Report 4744173-X (Version None)
Quarter: 2005Q3

REPORT INFORMATION
  Report Type: 
  Country: None (occurrence: None)
  Receive Date: 20050810
  Receipt Date: 20050810
  Transmission Date: 20060218
  Serious: Yes (Hospitalization)
  Sender: FDA-Public Use
  Company Number: None

PATIENT
  Age: 77 Year
  Sex: Female
  Weight: 83.4619 kg

DRUGS (1)
  1. DICLOFENAC [Suspect]
     Dosage: { 1 WEEK

REACTIONS (1)
  - URTICARIA [None]
